FAERS Safety Report 13424169 (Version 1)
Quarter: 2017Q2

REPORT INFORMATION
  Report Type: Report from Study
  Country: US (occurrence: US)
  Receive Date: 20170410
  Receipt Date: 20170410
  Transmission Date: 20170830
  Serious: Yes (Death, Hospitalization, Other)
  Sender: FDA-Public Use
  Company Number: US-BAYER-2016-006343

PATIENT
  Age: 82 Year
  Sex: Male
  Weight: 76.64 kg

DRUGS (9)
  1. ADEMPAS [Suspect]
     Active Substance: RIOCIGUAT
     Indication: PULMONARY HYPERTENSION
     Dosage: 1.5 MG, TID (LAST SHIPPED 22-JAN-2016)
     Route: 048
  2. XARELTO [Concomitant]
     Active Substance: RIVAROXABAN
     Dosage: UNK
  3. AMLODIPINE [Concomitant]
     Active Substance: AMLODIPINE BESYLATE
  4. ADEMPAS [Suspect]
     Active Substance: RIOCIGUAT
     Indication: PULMONARY HYPERTENSION
     Dosage: 1 MG, TID (LAST SHIPPED 28-JAN-2016)
     Route: 048
  5. ADEMPAS [Suspect]
     Active Substance: RIOCIGUAT
     Indication: PULMONARY HYPERTENSION
     Dosage: 1 MG, TID (LAST SHIPPED 22-DEC-2015)
     Route: 048
     Dates: start: 201512
  6. ADEMPAS [Suspect]
     Active Substance: RIOCIGUAT
     Indication: PULMONARY HYPERTENSION
     Dosage: 2.5 MG, TID (LAST SHIPPED 28-JUL-2016)
     Route: 048
  7. ADEMPAS [Suspect]
     Active Substance: RIOCIGUAT
     Indication: PULMONARY HYPERTENSION
     Dosage: UNK
     Dates: start: 20151222
  8. ADEMPAS [Suspect]
     Active Substance: RIOCIGUAT
     Indication: PULMONARY HYPERTENSION
     Dosage: 1 MG, TID (LAST SHIPPED 28-JAN-2016)
     Route: 048
  9. ADEMPAS [Suspect]
     Active Substance: RIOCIGUAT
     Indication: PULMONARY HYPERTENSION
     Dosage: 2.5 MG, TID
     Route: 048

REACTIONS (17)
  - Fall [None]
  - Fall [Unknown]
  - Urine output decreased [Unknown]
  - Fluid retention [None]
  - Contusion [None]
  - Dyspnoea [Unknown]
  - Gait disturbance [None]
  - Death [Fatal]
  - Anuria [Unknown]
  - Swelling [Unknown]
  - Oedema [Unknown]
  - Dyspnoea [Unknown]
  - Oedema [Unknown]
  - Weight increased [Unknown]
  - Feeling abnormal [None]
  - Skin infection [None]
  - Malaise [None]

NARRATIVE: CASE EVENT DATE: 201601
